FAERS Safety Report 6023669-7 (Version None)
Quarter: 2008Q4

REPORT INFORMATION
  Report Type: 
  Country: None (occurrence: None)
  Receive Date: 20081229
  Receipt Date: 20081229
  Transmission Date: 20090506
  Serious: No
  Sender: FDA-Public Use
  Company Number: None

PATIENT
  Age: 65 Year
  Sex: Female
  Weight: 58.9676 kg

DRUGS (2)
  1. XANAX [Suspect]
     Indication: ANXIETY
     Dosage: 1 3 X DAY PO
     Route: 048
  2. ALPRAZOLAM [Suspect]
     Indication: PANIC ATTACK
     Dosage: 1 3 X DAY PO
     Route: 048
     Dates: start: 20060721, end: 20080703

REACTIONS (8)
  - ABDOMINAL DISCOMFORT [None]
  - CONFUSIONAL STATE [None]
  - DRUG INEFFECTIVE [None]
  - GLOSSODYNIA [None]
  - PRODUCT QUALITY ISSUE [None]
  - SOMNOLENCE [None]
  - THERAPEUTIC RESPONSE UNEXPECTED WITH DRUG SUBSTITUTION [None]
  - TREMOR [None]
